FAERS Safety Report 12238668 (Version 1)
Quarter: 2016Q2

REPORT INFORMATION
  Report Type: Spontaneous
  Country: US (occurrence: US)
  Receive Date: 20160405
  Receipt Date: 20160405
  Transmission Date: 20160815
  Serious: No
  Sender: FDA-Public Use
  Company Number: US-TEVA-599609USA

PATIENT
  Sex: Female

DRUGS (2)
  1. WARFARIN [Suspect]
     Active Substance: WARFARIN
     Dosage: 2.5 MILLIGRAM DAILY;
     Route: 065
  2. WARFARIN [Suspect]
     Active Substance: WARFARIN
     Dosage: 5MG ON TUES AND FRIDAY; OTHER DAYS 2.5MG
     Route: 065

REACTIONS (2)
  - Pain in extremity [Unknown]
  - Balance disorder [Unknown]
